FAERS Safety Report 17273133 (Version 1)
Quarter: 2020Q1

REPORT INFORMATION
  Report Type: Spontaneous
  Country: US (occurrence: US)
  Receive Date: 20191223
  Receipt Date: 20191223
  Transmission Date: 20200409
  Serious: Yes (Life-Threatening, Hospitalization)
  Sender: FDA-Public Use
  Company Number: None

PATIENT
  Age: 70 Year
  Sex: Male
  Weight: 58.97 kg

DRUGS (1)
  1. ZOLEDRONIC (ZOLEDRONIC ACID 4MG/VIL INJ ) [Suspect]
     Active Substance: ZOLEDRONIC ACID
     Indication: OSTEONECROSIS OF JAW
     Dates: start: 20161201, end: 20181029

REACTIONS (1)
  - Osteonecrosis of jaw [None]

NARRATIVE: CASE EVENT DATE: 20191028
